FAERS Safety Report 4359228-1 (Version None)
Quarter: 2004Q2

REPORT INFORMATION
  Report Type: 
  Country: None (occurrence: None)
  Receive Date: 20040517
  Receipt Date: 20040517
  Transmission Date: 20050107
  Serious: Yes (Hospitalization)
  Sender: FDA-Public Use
  Company Number: None

PATIENT
  Age: 54 Year
  Sex: Male

DRUGS (13)
  1. GLYBURIDE [Suspect]
     Indication: DIABETES MELLITUS NON-INSULIN-DEPENDENT
     Dosage: 5 MC BID
     Dates: start: 20000701
  2. PROPOXYPHENE [Concomitant]
  3. AMITRIPTYLINE HCL [Concomitant]
  4. METFORMIN HCL [Concomitant]
  5. FLUOXETINE [Concomitant]
  6. HYDROCHLOROTHIAZIDE [Concomitant]
  7. GEMFIBROZIL [Concomitant]
  8. LORAZEPAM [Concomitant]
  9. VERAPAMIL [Concomitant]
  10. METHOCARBAMOL [Concomitant]
  11. ACIPHEX [Concomitant]
  12. ATENOLOL [Concomitant]
  13. FOSINOPRIL SODIUM [Concomitant]

REACTIONS (2)
  - FALL [None]
  - HYPOGLYCAEMIA [None]
